FAERS Safety Report 9571454 (Version 1)
Quarter: 2013Q3

REPORT INFORMATION
  Report Type: Spontaneous
  Country: DE (occurrence: None)
  Receive Date: 20130927
  Receipt Date: 20130927
  Transmission Date: 20140515
  Serious: Yes (Death, Hospitalization)
  Sender: FDA-Public Use
  Company Number: IPC201309-000365

PATIENT
  Age: 63 Year
  Sex: 0

DRUGS (2)
  1. ALLOPURINOL [Suspect]
  2. VEMURAFENIB [Suspect]
     Indication: METASTATIC NEOPLASM

REACTIONS (6)
  - Fatigue [None]
  - Tachycardia [None]
  - Diarrhoea [None]
  - Nausea [None]
  - Rash maculo-papular [None]
  - Leukopenia [None]
